FAERS Safety Report 21698231 (Version 1)
Quarter: 2022Q4

REPORT INFORMATION
  Report Type: Spontaneous
  Country: US (occurrence: US)
  Receive Date: 20221208
  Receipt Date: 20221208
  Transmission Date: 20230112
  Serious: Yes (Other)
  Sender: FDA-Public Use
  Company Number: US-STRIDES ARCOLAB LIMITED-2022SP010232

PATIENT
  Age: 11 Year
  Sex: Female

DRUGS (6)
  1. OLANZAPINE [Suspect]
     Active Substance: OLANZAPINE
     Indication: Hallucination, visual
     Dosage: UNK
     Route: 065
  2. OLANZAPINE [Suspect]
     Active Substance: OLANZAPINE
     Indication: Affect lability
  3. OLANZAPINE [Suspect]
     Active Substance: OLANZAPINE
     Indication: Selective mutism
  4. OLANZAPINE [Suspect]
     Active Substance: OLANZAPINE
     Indication: Anxiety
  5. OLANZAPINE [Suspect]
     Active Substance: OLANZAPINE
     Indication: Disorientation
  6. METHOTREXATE [Concomitant]
     Active Substance: METHOTREXATE
     Indication: Acute lymphocytic leukaemia
     Dosage: UNK,HIGH DOSE
     Route: 037

REACTIONS (1)
  - Drug ineffective for unapproved indication [Unknown]
